FAERS Safety Report 6396841-4 (Version None)
Quarter: 2009Q4

REPORT INFORMATION
  Report Type: 
  Country: None (occurrence: None)
  Receive Date: 20091012
  Receipt Date: 20090603
  Transmission Date: 20100525
  Serious: No
  Sender: FDA-Public Use
  Company Number: US-ASTRAZENECA-2009UW14169

PATIENT
  Age: 83 Year
  Sex: Female
  Weight: 70.8 kg

DRUGS (7)
  1. SYMBICORT [Suspect]
     Dosage: 320 MCG
     Route: 055
  2. BENICAR [Concomitant]
  3. TOPROL-XL [Concomitant]
     Route: 048
  4. HYDROCHLOROTHIAZIDE [Concomitant]
  5. CRESTOR [Concomitant]
     Route: 048
  6. SYNTHROID [Concomitant]
  7. PLENDIL [Concomitant]

REACTIONS (1)
  - ALOPECIA [None]
